FAERS Safety Report 8923957 (Version 2)
Quarter: 2012Q4

REPORT INFORMATION
  Report Type: 
  Country: US (occurrence: US)
  Receive Date: 20121127
  Receipt Date: 20121220
  Transmission Date: 20130627
  Serious: No
  Sender: FDA-Public Use
  Company Number: US-ASTRAZENECA-2006UW11388

PATIENT
  Age: 67 Year
  Sex: Female

DRUGS (4)
  1. SEROQUEL [Suspect]
     Route: 048
  2. SEROQUEL [Suspect]
     Route: 048
  3. RHINOCORT [Suspect]
     Route: 045
  4. NEXIUM [Suspect]
     Route: 048

REACTIONS (1)
  - Diabetes mellitus [Unknown]
